FAERS Safety Report 7729711-7 (Version None)
Quarter: 2011Q3

REPORT INFORMATION
  Report Type: 
  Country: None (occurrence: None)
  Receive Date: 20110901
  Receipt Date: 20110901
  Transmission Date: 20111222
  Serious: Yes (Hospitalization)
  Sender: FDA-Public Use
  Company Number: None

PATIENT
  Age: 59 Year
  Sex: Male
  Weight: 116.5 kg

DRUGS (2)
  1. TRAZODONE HCL [Suspect]
     Indication: INSOMNIA
     Dosage: 200 MG HS PO
     Route: 048
     Dates: start: 20100225, end: 20110711
  2. METHADONE HCL [Suspect]
     Indication: PAIN
     Dosage: 10 MG TID PO
     Route: 048
     Dates: start: 20100202, end: 20110711

REACTIONS (1)
  - ELECTROCARDIOGRAM QT INTERVAL ABNORMAL [None]
